FAERS Safety Report 7678823-5 (Version None)
Quarter: 2011Q3

REPORT INFORMATION
  Report Type: 
  Country: None (occurrence: None)
  Receive Date: 20110811
  Receipt Date: 20110802
  Transmission Date: 20111222
  Serious: Yes (Hospitalization)
  Sender: FDA-Public Use
  Company Number: SE-ASTRAZENECA-2006SE01219

PATIENT
  Age: 6 Year
  Sex: Male

DRUGS (3)
  1. KAVEPENIN [Suspect]
     Indication: ACUTE TONSILLITIS
     Route: 048
     Dates: start: 20051001, end: 20051010
  2. LOMUDAL [Concomitant]
     Route: 048
  3. SYMBICORT MITE TURBUHALER [Suspect]
     Indication: ASTHMA
     Dosage: 80/4.5 UG
     Route: 055

REACTIONS (5)
  - OESOPHAGEAL CANDIDIASIS [None]
  - WEIGHT DECREASED [None]
  - DUODENITIS [None]
  - GASTRITIS [None]
  - FUNGAL INFECTION [None]
